FAERS Safety Report 20665170 (Version 1)
Quarter: 2022Q2

REPORT INFORMATION
  Report Type: Report from Study
  Country: IT (occurrence: IT)
  Receive Date: 20220401
  Receipt Date: 20220401
  Transmission Date: 20220720
  Serious: Yes (Congenital Anomaly)
  Sender: FDA-Public Use
  Company Number: IT-BIOGEN-2022BI01110025

PATIENT
  Age: 0 Year
  Sex: Female
  Weight: 0 kg

DRUGS (1)
  1. TYSABRI [Suspect]
     Active Substance: NATALIZUMAB
     Indication: Relapsing multiple sclerosis
     Dosage: TYSABRI ? 300 MG CONCENTRATE FOR SOLUTION FOR INFUSION INTRAVENOUS USE 1 VIAL OF 15 ML (20 MG)
     Route: 064

REACTIONS (2)
  - Turner^s syndrome [Unknown]
  - Prenatal screening test [Unknown]

NARRATIVE: CASE EVENT DATE: 20220126
